FAERS Safety Report 7994555-8 (Version None)
Quarter: 2011Q4

REPORT INFORMATION
  Report Type: 
  Country: None (occurrence: None)
  Receive Date: 20111220
  Receipt Date: 20111216
  Transmission Date: 20120403
  Serious: Yes (Other)
  Sender: FDA-Public Use
  Company Number: AU-PFIZER INC-2011307215

PATIENT
  Age: 52 Year
  Sex: Female

DRUGS (3)
  1. LIPITOR [Suspect]
     Dosage: 20MG, UNK
     Dates: start: 19990101
  2. CRESTOR [Suspect]
     Dosage: 10MG, UNK
     Dates: end: 20090501
  3. LIPITOR [Suspect]
     Dosage: 10MG, UNK

REACTIONS (1)
  - BREAST CANCER [None]
